FAERS Safety Report 17974311 (Version 1)
Quarter: 2020Q3

REPORT INFORMATION
  Report Type: Spontaneous
  Country: US (occurrence: US)
  Receive Date: 20200702
  Receipt Date: 20200702
  Transmission Date: 20201103
  Serious: Yes (Other)
  Sender: FDA-Public Use
  Company Number: None

PATIENT
  Age: 73 Year
  Sex: Female

DRUGS (12)
  1. PROCHLORPERAZINE 10MG [Concomitant]
  2. ALPRAZOLAM. [Concomitant]
     Active Substance: ALPRAZOLAM
  3. REVLIMID [Concomitant]
     Active Substance: LENALIDOMIDE
  4. LOSARTAN/HCTZ 100/12.5MG [Concomitant]
     Active Substance: HYDROCHLOROTHIAZIDE\LOSARTAN
  5. NINLARO [Suspect]
     Active Substance: IXAZOMIB CITRATE
     Indication: PLASMA CELL MYELOMA
     Dosage: ?          OTHER FREQUENCY:ON DAYS 1, 8, 15;?
     Route: 048
     Dates: start: 20200514
  6. ATENOLOL 100MG [Concomitant]
     Active Substance: ATENOLOL
  7. VALACYCLOVIR 1GM [Concomitant]
     Active Substance: VALACYCLOVIR HYDROCHLORIDE
  8. ACYCLOVIR 400MG [Concomitant]
     Active Substance: ACYCLOVIR
  9. AMLODIPINE [Concomitant]
     Active Substance: AMLODIPINE BESYLATE
  10. ESCITALOPRAM [Concomitant]
     Active Substance: ESCITALOPRAM OXALATE
  11. OXYBUTYNIN ER 5MG [Concomitant]
  12. SIMVASTATIN 40MG [Concomitant]
     Active Substance: SIMVASTATIN

REACTIONS (3)
  - Dyspepsia [None]
  - Wrong schedule [None]
  - Memory impairment [None]

NARRATIVE: CASE EVENT DATE: 20200611
